FAERS Safety Report 4490091-4 (Version None)
Quarter: 2004Q4

REPORT INFORMATION
  Report Type: 
  Country: None (occurrence: None)
  Receive Date: 20041027
  Receipt Date: 20041025
  Transmission Date: 20050328
  Serious: Yes (Other)
  Sender: FDA-Public Use
  Company Number: 200419741BWH

PATIENT
  Sex: Female

DRUGS (2)
  1. LEVITRA [Suspect]
     Dosage: ORAL
     Route: 048
  2. BLOOD THINNERS [Concomitant]

REACTIONS (1)
  - HAEMORRHAGE URINARY TRACT [None]
